FAERS Safety Report 5042386-3 (Version None)
Quarter: 2006Q2

REPORT INFORMATION
  Report Type: 
  Country: None (occurrence: None)
  Receive Date: 20060627
  Receipt Date: 20060614
  Transmission Date: 20061013
  Serious: Yes (Other)
  Sender: FDA-Public Use
  Company Number: 2006069623

PATIENT

DRUGS (4)
  1. UNASYN [Suspect]
     Indication: PNEUMONIA ASPIRATION
     Dosage: 4.5 GRAM (1.5 GRAM, 3 IN 1 D) INTRAVENOUS
     Route: 042
     Dates: start: 20060425, end: 20060508
  2. DEPAKENE [Suspect]
     Indication: ILL-DEFINED DISORDER
     Dosage: 600 MG ORAL
     Route: 048
  3. PHENOBARBITAL TAB [Suspect]
     Indication: ILL-DEFINED DISORDER
     Dosage: 30 MG ORAL
     Route: 048
  4. ZONISAMIDE [Suspect]
     Indication: ILL-DEFINED DISORDER
     Dosage: 230 MG ORAL
     Route: 048

REACTIONS (3)
  - CONVULSION [None]
  - DISEASE RECURRENCE [None]
  - PNEUMONIA ASPIRATION [None]
